FAERS Safety Report 7556715-X (Version None)
Quarter: 2011Q2

REPORT INFORMATION
  Report Type: 
  Country: None (occurrence: None)
  Receive Date: 20110620
  Receipt Date: 20110608
  Transmission Date: 20111010
  Serious: Yes (Hospitalization)
  Sender: FDA-Public Use
  Company Number: JP-SANOFI-AVENTIS-2011SA033576

PATIENT
  Age: 25 Year
  Sex: Female

DRUGS (14)
  1. SEROQUEL [Suspect]
     Indication: SCHIZOPHRENIA
     Route: 048
     Dates: end: 20110516
  2. PROMETHAZINE HCL [Suspect]
     Route: 048
     Dates: end: 20110516
  3. SEROQUEL [Suspect]
     Route: 048
     Dates: start: 20110517, end: 20110517
  4. NITRAZEPAM [Suspect]
     Route: 048
     Dates: start: 20110517, end: 20110517
  5. SENNOSIDE A+B [Suspect]
     Indication: CONSTIPATION
     Route: 048
     Dates: end: 20110516
  6. SENNOSIDE A+B [Suspect]
     Route: 048
     Dates: start: 20110517, end: 20110517
  7. ZOLPIDEM [Suspect]
     Indication: INSOMNIA
     Dosage: LARGE DOSE (NOS).
     Route: 048
     Dates: end: 20110516
  8. PROMETHAZINE HCL [Suspect]
     Route: 048
     Dates: start: 20110517, end: 20110517
  9. PL GRAN. [Suspect]
     Route: 048
     Dates: end: 20110516
  10. PL GRAN. [Suspect]
     Route: 048
     Dates: start: 20110517, end: 20110517
  11. ZOLPIDEM [Suspect]
     Dosage: LARGE DOSE (NOS).
     Route: 048
     Dates: start: 20110517, end: 20110517
  12. NITRAZEPAM [Suspect]
     Indication: INSOMNIA
     Route: 048
     Dates: end: 20110516
  13. DORAL [Suspect]
     Indication: INSOMNIA
     Route: 048
     Dates: end: 20110516
  14. DORAL [Suspect]
     Route: 048
     Dates: start: 20110517, end: 20110517

REACTIONS (2)
  - MULTIPLE DRUG OVERDOSE [None]
  - PNEUMONIA ASPIRATION [None]
